FAERS Safety Report 20973638 (Version 2)
Quarter: 2025Q1

REPORT INFORMATION
  Report Type: Spontaneous
  Country: US (occurrence: US)
  Receive Date: 20220617
  Receipt Date: 20250204
  Transmission Date: 20250409
  Serious: Yes (Other)
  Sender: NOVO NORDISK
  Company Number: US-NOVOPROD-925953

PATIENT
  Sex: Female

DRUGS (2)
  1. TRESIBA [Suspect]
     Active Substance: INSULIN DEGLUDEC
     Indication: Type 2 diabetes mellitus
     Dosage: 16 IU, QD
     Route: 058
     Dates: start: 201905
  2. JANUMET XR [Concomitant]
     Active Substance: METFORMIN HYDROCHLORIDE\SITAGLIPTIN PHOSPHATE
     Indication: Type 2 diabetes mellitus

REACTIONS (9)
  - Cystitis [Not Recovered/Not Resolved]
  - Labyrinthitis [Unknown]
  - Protein urine present [Unknown]
  - Weight increased [Not Recovered/Not Resolved]
  - Blood glucose fluctuation [Unknown]
  - COVID-19 [Unknown]
  - Metamorphopsia [Unknown]
  - Root canal infection [Unknown]
  - Vertigo [Unknown]

NARRATIVE: CASE EVENT DATE: 20210101
